FAERS Safety Report 9152541 (Version 2)
Quarter: 2013Q1

REPORT INFORMATION
  Report Type: Report from Study
  Country: DE (occurrence: DE)
  Receive Date: 20130308
  Receipt Date: 20130322
  Transmission Date: 20140127
  Serious: Yes (Hospitalization)
  Sender: FDA-Public Use
  Company Number: DE-009507513-1303DEU002031

PATIENT
  Age: 67 Year
  Sex: Male

DRUGS (4)
  1. PLACEBO [Suspect]
     Indication: OSTEOPOROSIS
     Route: 048
  2. PHENPROCOUMON [Concomitant]
     Dosage: UNK
  3. METOPROLOL SUCCINATE [Concomitant]
     Dosage: 95 MG, BID
  4. RAMIPRIL [Concomitant]
     Dosage: 10 MG, QD

REACTIONS (2)
  - Cholelithiasis [Recovered/Resolved]
  - Abdominal pain upper [Recovered/Resolved]
